FAERS Safety Report 12165402 (Version 3)
Quarter: 2016Q1

REPORT INFORMATION
  Report Type: Spontaneous
  Country: US (occurrence: US)
  Receive Date: 20160309
  Receipt Date: 20160314
  Transmission Date: 20160526
  Serious: Yes (Hospitalization)
  Sender: FDA-Public Use
  Company Number: US-FRESENIUS KABI-FK201601191

PATIENT
  Age: 2 Year
  Sex: Male

DRUGS (5)
  1. VINBLASTINE (MANUFACTURER UNKNOWN) [Suspect]
     Active Substance: VINBLASTINE
     Indication: IMMUNOSUPPRESSION
     Route: 065
  2. MERCAPTOPURINE (MANUFACTURER UNKNOWN) [Suspect]
     Active Substance: MERCAPTOPURINE
     Indication: IMMUNOSUPPRESSION
     Route: 065
  3. PREDNISONE. [Suspect]
     Active Substance: PREDNISONE
     Indication: IMMUNOSUPPRESSION
  4. DACLIZUMAB [Concomitant]
     Active Substance: DACLIZUMAB
     Indication: IMMUNOSUPPRESSION
  5. CLADRIBINE (MANUFACTURER UNKNOWN) [Suspect]
     Active Substance: CLADRIBINE
     Indication: IMMUNOSUPPRESSION
     Route: 065

REACTIONS (1)
  - Graft versus host disease in skin [Recovered/Resolved]
